FAERS Safety Report 8806724 (Version 1)
Quarter: 2012Q4

REPORT INFORMATION
  Report Type: Spontaneous
  Country: None (occurrence: None)
  Receive Date: 20120919
  Receipt Date: 20120919
  Transmission Date: 20130627
  Serious: Yes (Other)
  Sender: FDA-Public Use
  Company Number: AUR-APL-2012-03973

PATIENT
  Age: 27 Year
  Sex: Female

DRUGS (2)
  1. NAPROXEN (NAPROXEN) [Suspect]
     Indication: COSTOCHONDRITIS
     Dates: start: 20120816, end: 20120820
  2. FLUOXETINE (FLUOXETINE) [Concomitant]

REACTIONS (2)
  - Hallucination [None]
  - Emotional distress [None]
